FAERS Safety Report 15075304 (Version 1)
Quarter: 2018Q2

REPORT INFORMATION
  Report Type: Spontaneous
  Country: US (occurrence: US)
  Receive Date: 20180627
  Receipt Date: 20180627
  Transmission Date: 20180711
  Serious: Yes (Other)
  Sender: FDA-Public Use
  Company Number: US-SAOL THERAPEUTICS-2018SAO00299

PATIENT
  Sex: Male

DRUGS (6)
  1. BACLOFEN. [Suspect]
     Active Substance: BACLOFEN
     Indication: SPINAL PAIN
     Route: 037
  2. BUPIVACAINE. [Suspect]
     Active Substance: BUPIVACAINE
  3. OXYCODONE [Suspect]
     Active Substance: OXYCODONE
     Dosage: 240 MG, 6X/DAY
  4. MORPHINE [Suspect]
     Active Substance: MORPHINE
  5. FENTANYL. [Suspect]
     Active Substance: FENTANYL
  6. VALIUM [Suspect]
     Active Substance: DIAZEPAM

REACTIONS (6)
  - Abdominal pain [Unknown]
  - Overdose [Unknown]
  - Off label use [Unknown]
  - Amnesia [Unknown]
  - Somnolence [Unknown]
  - Unevaluable event [Unknown]

NARRATIVE: CASE EVENT DATE: 2008
